FAERS Safety Report 5966033-9 (Version None)
Quarter: 2008Q4

REPORT INFORMATION
  Report Type: 
  Country: None (occurrence: None)
  Receive Date: 20081119
  Receipt Date: 20080728
  Transmission Date: 20090506
  Serious: No
  Sender: FDA-Public Use
  Company Number: WAES 0807USA05285

PATIENT
  Age: 55 Year
  Sex: Male

DRUGS (9)
  1. JANUVIA [Suspect]
     Indication: DIABETES MELLITUS
     Dosage: 100 MG/DAILY/PO
     Route: 048
     Dates: start: 20080128, end: 20080701
  2. TOPROL-XL [Concomitant]
  3. VASOTEC [Concomitant]
  4. COLCHICINE [Concomitant]
  5. GLIPIZIDE [Concomitant]
  6. ISOSORBIDE [Concomitant]
  7. MECLIZINE [Concomitant]
  8. OMEPRAZOLE [Concomitant]
  9. PAROXETINE HCL [Concomitant]

REACTIONS (1)
  - DRUG INEFFECTIVE [None]
